FAERS Safety Report 5545622-X (Version None)
Quarter: 2007Q4

REPORT INFORMATION
  Report Type: 
  Country: None (occurrence: None)
  Receive Date: 20071211
  Receipt Date: 20071126
  Transmission Date: 20080405
  Serious: Yes (Other)
  Sender: FDA-Public Use
  Company Number: US-ELI_LILLY_AND_COMPANY-US200711001852

PATIENT
  Age: 69 Year
  Sex: Female

DRUGS (10)
  1. CYMBALTA [Suspect]
     Indication: FIBROMYALGIA
     Dates: start: 20060501
  2. CYMBALTA [Suspect]
     Dosage: 120 MG, UNK
     Route: 048
  3. CYMBALTA [Suspect]
     Dosage: 30 MG, UNK
     Route: 048
  4. CYMBALTA [Suspect]
     Dosage: 120 MG, UNK
     Route: 048
  5. CYMBALTA [Suspect]
     Dosage: 60 MG, UNK
     Route: 048
  6. BYETTA [Concomitant]
     Dosage: 10 MG, UNK
     Dates: start: 20061101
  7. METFORMIN HCL [Concomitant]
  8. EPSOM SALT [Concomitant]
  9. NORVASC [Concomitant]
  10. DIOVAN [Concomitant]

REACTIONS (12)
  - BLOOD PRESSURE INCREASED [None]
  - BURNING SENSATION [None]
  - CONSTIPATION [None]
  - DIZZINESS [None]
  - DRUG INEFFECTIVE [None]
  - FATIGUE [None]
  - FEELING ABNORMAL [None]
  - FIBROMYALGIA [None]
  - MALAISE [None]
  - PAIN [None]
  - PALPITATIONS [None]
  - WEIGHT DECREASED [None]
